FAERS Safety Report 6963781-9 (Version None)
Quarter: 2010Q3

REPORT INFORMATION
  Report Type: 
  Country: None (occurrence: None)
  Receive Date: 20100902
  Receipt Date: 20100825
  Transmission Date: 20110219
  Serious: Yes (Hospitalization)
  Sender: FDA-Public Use
  Company Number: ES-WATSON-2010-11549

PATIENT
  Age: 44 Year
  Sex: Male

DRUGS (8)
  1. ISONIAZID [Suspect]
     Indication: TUBERCULOSIS
     Dosage: 300 MG, DAILY
     Route: 048
  2. CYCLOPHOSPHAMIDE [Suspect]
     Indication: HISTIOCYTOSIS HAEMATOPHAGIC
     Dosage: 100 -150 MG, TID
     Route: 042
  3. METHYLPREDNISOLONE ACETATE [Suspect]
     Indication: HISTIOCYTOSIS HAEMATOPHAGIC
     Dosage: 60 MG, DAILY
     Route: 042
  4. PREDNISONE (WATSON LABORATORIES) [Suspect]
     Indication: HISTIOCYTOSIS HAEMATOPHAGIC
     Dosage: 70 MG, DAILY
     Route: 042
  5. ETHAMBUTOL HYDROCHLORIDE [Suspect]
     Indication: TUBERCULOSIS
     Dosage: 2 G, DAILY
     Route: 048
  6. PYRAZINAMIDE [Suspect]
     Indication: TUBERCULOSIS
     Dosage: 1750 MG, DAILY
     Route: 048
  7. RIFAMPIN [Suspect]
     Indication: TUBERCULOSIS
     Dosage: 600 MG, DAILY
     Route: 048
  8. INFLIXIMAB [Suspect]
     Indication: ANKYLOSING SPONDYLITIS
     Dosage: 5 MG/KG/D
     Route: 042

REACTIONS (2)
  - IMMUNE RECONSTITUTION SYNDROME [None]
  - PARADOXICAL DRUG REACTION [None]
